FAERS Safety Report 9362852 (Version 1)
Quarter: 2013Q2

REPORT INFORMATION
  Report Type: Spontaneous
  Country: US (occurrence: None)
  Receive Date: 20130621
  Receipt Date: 20130621
  Transmission Date: 20140414
  Serious: Yes (Death)
  Sender: FDA-Public Use
  Company Number: None

PATIENT
  Age: 57 Year
  Sex: Male

DRUGS (1)
  1. ZELBORAF 240 MG, GENENGTECH [Suspect]
     Route: 048
     Dates: start: 20130128, end: 20130523

REACTIONS (1)
  - Death [None]
